FAERS Safety Report 16668454 (Version 1)
Quarter: 2019Q3

REPORT INFORMATION
  Report Type: Spontaneous
  Country: US (occurrence: US)
  Receive Date: 20190803
  Receipt Date: 20190803
  Transmission Date: 20191004
  Serious: Yes (Disabling)
  Sender: FDA-Public Use
  Company Number: None

PATIENT
  Age: 38 Year
  Sex: Female
  Weight: 79.65 kg

DRUGS (4)
  1. AMITRYPTALINE [Concomitant]
     Active Substance: AMITRIPTYLINE
  2. GABAPENTIN. [Concomitant]
     Active Substance: GABAPENTIN
  3. VYVANSE [Suspect]
     Active Substance: LISDEXAMFETAMINE DIMESYLATE
     Indication: ATTENTION DEFICIT/HYPERACTIVITY DISORDER
     Dosage: ?          QUANTITY:1 CAPSULE(S);?
     Route: 048
     Dates: start: 20190201, end: 20190803
  4. TRAMADOL. [Concomitant]
     Active Substance: TRAMADOL

REACTIONS (4)
  - Counterfeit product administered [None]
  - Drug ineffective [None]
  - Product formulation issue [None]
  - Condition aggravated [None]
